FAERS Safety Report 12155319 (Version 1)
Quarter: 2016Q1

REPORT INFORMATION
  Report Type: Spontaneous
  Country: US (occurrence: US)
  Receive Date: 20160307
  Receipt Date: 20160307
  Transmission Date: 20160526
  Serious: No
  Sender: FDA-Public Use
  Company Number: US-009507513-1603USA002584

PATIENT
  Age: 55 Year
  Sex: Male

DRUGS (12)
  1. VICTRELIS [Suspect]
     Active Substance: BOCEPREVIR
     Dosage: 200 MG, TID (EVERY 7-9 HOURS WITH FOOD)
     Route: 048
  2. COPEGUS [Suspect]
     Active Substance: RIBAVIRIN
     Dosage: 600 MG IN THE MORNING, 600 MG IN THE EVENING
     Route: 048
  3. NORCO [Concomitant]
     Active Substance: ACETAMINOPHEN\HYDROCODONE BITARTRATE
     Dosage: UNK
  4. VICTRELIS [Suspect]
     Active Substance: BOCEPREVIR
     Dosage: 800 MG, TID
     Route: 048
  5. PEGASYS [Suspect]
     Active Substance: PEGINTERFERON ALFA-2A
     Indication: HEPATITIS C
     Dosage: 180 MICROGRAM, QW
     Route: 058
  6. INCIVEK [Suspect]
     Active Substance: TELAPREVIR
     Indication: HEPATITIS C
     Dosage: 375 MG, TID WITH FOOD (20G OF FAT WITHIN 30MIN BEFORE EACH DOSE)
     Route: 048
  7. COPEGUS [Suspect]
     Active Substance: RIBAVIRIN
     Indication: HEPATITIS C
     Dosage: 600 MG, QD
     Route: 048
  8. PEGASYS [Suspect]
     Active Substance: PEGINTERFERON ALFA-2A
     Dosage: UNK
     Route: 058
  9. OMEPRAZOLE. [Concomitant]
     Active Substance: OMEPRAZOLE
     Dosage: UNK
  10. PRINIVIL [Concomitant]
     Active Substance: LISINOPRIL
     Dosage: 10 MG, QD
     Route: 048
  11. COPEGUS [Suspect]
     Active Substance: RIBAVIRIN
     Dosage: 200 MG EVERY MORNING, 300 MG EVERY NIGHT
     Route: 048
  12. ZYPREXA [Concomitant]
     Active Substance: OLANZAPINE
     Dosage: 10 MG, UNK
     Route: 048

REACTIONS (5)
  - Pyrexia [Unknown]
  - Fatigue [Unknown]
  - Stress [Unknown]
  - Abdominal pain [Unknown]
  - Diarrhoea [Unknown]
